FAERS Safety Report 9516637 (Version 1)
Quarter: 2013Q1

REPORT INFORMATION
  Report Type: Spontaneous
  Country: US (occurrence: None)
  Receive Date: 20130305
  Receipt Date: 20130305
  Transmission Date: 20140127
  Serious: Yes (Hospitalization, Other)
  Sender: FDA-Public Use
  Company Number: 163-21880-12011738

PATIENT
  Age: 70 Year
  Sex: Male

DRUGS (1)
  1. REVLIMID [Suspect]
     Indication: RECTAL ADENOCARCINOMA
     Dosage: 10 MG, DAILY X 21 DAYS/Q 28 DAYS, PO
     Dates: start: 20111027, end: 20120114

REACTIONS (3)
  - Malignant anorectal neoplasm [None]
  - Disease progression [None]
  - Drug ineffective [None]
